FAERS Safety Report 7034011-7 (Version None)
Quarter: 2010Q4

REPORT INFORMATION
  Report Type: 
  Country: None (occurrence: None)
  Receive Date: 20101007
  Receipt Date: 20101001
  Transmission Date: 20110411
  Serious: Yes (Death, Other)
  Sender: FDA-Public Use
  Company Number: PHHY2010CA65099

PATIENT
  Sex: Male

DRUGS (1)
  1. CLOZARIL [Suspect]
     Indication: SCHIZOPHRENIA
     Dosage: 400 MG, QHS
     Route: 048
     Dates: start: 20040513

REACTIONS (13)
  - ANAEMIA [None]
  - ARTERIOSCLEROSIS CORONARY ARTERY [None]
  - BENIGN PROSTATIC HYPERPLASIA [None]
  - CEREBROVASCULAR ACCIDENT [None]
  - CHRONIC OBSTRUCTIVE PULMONARY DISEASE [None]
  - COLONIC STENOSIS [None]
  - DELIRIUM [None]
  - ENTEROVESICAL FISTULA [None]
  - EPILEPSY [None]
  - INTESTINAL OBSTRUCTION [None]
  - RENAL FAILURE [None]
  - SUBDURAL HAEMATOMA [None]
  - URINARY TRACT INFECTION [None]
